FAERS Safety Report 7340996-1 (Version None)
Quarter: 2011Q1

REPORT INFORMATION
  Report Type: 
  Country: None (occurrence: None)
  Receive Date: 20110309
  Receipt Date: 20100330
  Transmission Date: 20110831
  Serious: No
  Sender: FDA-Public Use
  Company Number: US-ABBOTT-10P-163-0632511-00

PATIENT
  Weight: 43.13 kg

DRUGS (6)
  1. XOPENEX [Concomitant]
     Indication: ASTHMA
  2. FLOVENT [Concomitant]
     Indication: ASTHMA
  3. PREDNISOLONE [Concomitant]
     Indication: ASTHMA
  4. LUPRON DEPOT [Suspect]
     Indication: PRECOCIOUS PUBERTY
     Dates: end: 20100101
  5. ADVAIR DISKUS 100/50 [Concomitant]
     Indication: ASTHMA
  6. LUPRON DEPOT [Suspect]
     Dates: start: 20100101

REACTIONS (1)
  - DRUG EFFECT DECREASED [None]
